FAERS Safety Report 9738595 (Version 15)
Quarter: 2015Q4

REPORT INFORMATION
  Report Type: Report from Study
  Country: CA (occurrence: CA)
  Receive Date: 20131209
  Receipt Date: 20151215
  Transmission Date: 20160305
  Serious: Yes (Other)
  Sender: FDA-Public Use
  Company Number: CA-ROCHE-1311564

PATIENT
  Age: 50 Year
  Sex: Female
  Weight: 77.1 kg

DRUGS (16)
  1. METHOTREXATE [Suspect]
     Active Substance: METHOTREXATE
     Indication: PRODUCT USED FOR UNKNOWN INDICATION
     Route: 048
  2. PREDNISONE. [Concomitant]
     Active Substance: PREDNISONE
     Route: 065
  3. TYLENOL WITH CODEINE [Concomitant]
     Active Substance: ACETAMINOPHEN\CODEINE PHOSPHATE
  4. ACETAMINOPHEN. [Concomitant]
     Active Substance: ACETAMINOPHEN
     Indication: PREMEDICATION
     Route: 048
     Dates: start: 20131115
  5. HYDROCHLOROTHIAZIDE. [Concomitant]
     Active Substance: HYDROCHLOROTHIAZIDE
  6. ZOPICLONE [Concomitant]
     Active Substance: ZOPICLONE
     Dosage: AT BEDTIME
     Route: 065
  7. KADIAN [Concomitant]
     Active Substance: MORPHINE SULFATE
     Route: 065
  8. RABEPRAZOLE [Concomitant]
     Active Substance: RABEPRAZOLE
     Route: 065
  9. METHYLPREDNISOLONE. [Concomitant]
     Active Substance: METHYLPREDNISOLONE
     Indication: PREMEDICATION
     Route: 042
     Dates: start: 20131115
  10. ESCITALOPRAM [Concomitant]
     Active Substance: ESCITALOPRAM OXALATE
     Route: 065
     Dates: start: 20150503
  11. RITUXAN [Suspect]
     Active Substance: RITUXIMAB
     Indication: RHEUMATOID ARTHRITIS
     Dosage: FREQUENCY: DAY 1 AND 15, 15/NOV/2013
     Route: 042
     Dates: start: 20101005
  12. FOLIC ACID. [Concomitant]
     Active Substance: FOLIC ACID
  13. DIPHENHYDRAMINE HCL [Concomitant]
     Active Substance: DIPHENHYDRAMINE HYDROCHLORIDE
     Indication: PREMEDICATION
     Route: 048
     Dates: start: 20131115
  14. RAMIPRIL. [Concomitant]
     Active Substance: RAMIPRIL
  15. VITAMIN B12 [Concomitant]
     Active Substance: CYANOCOBALAMIN
  16. DOMPERIDONE [Concomitant]
     Active Substance: DOMPERIDONE
     Route: 065
     Dates: start: 20150503

REACTIONS (31)
  - Feeling abnormal [Not Recovered/Not Resolved]
  - Feeling hot [Recovered/Resolved]
  - Nasopharyngitis [Not Recovered/Not Resolved]
  - Paranoia [Not Recovered/Not Resolved]
  - Hepatic enzyme increased [Unknown]
  - Blood pressure fluctuation [Unknown]
  - Gingival bleeding [Unknown]
  - Rheumatoid arthritis [Unknown]
  - Thyroid disorder [Unknown]
  - Limb deformity [Not Recovered/Not Resolved]
  - Corneal disorder [Unknown]
  - Arthritis [Not Recovered/Not Resolved]
  - Anger [Not Recovered/Not Resolved]
  - Hypotension [Unknown]
  - Epistaxis [Recovered/Resolved]
  - Nausea [Unknown]
  - Balance disorder [Not Recovered/Not Resolved]
  - Abdominal pain upper [Unknown]
  - Candida infection [Unknown]
  - Fatigue [Not Recovered/Not Resolved]
  - Abdominal pain [Unknown]
  - Confusional state [Not Recovered/Not Resolved]
  - Cataract [Not Recovered/Not Resolved]
  - Nephrolithiasis [Unknown]
  - Cataract [Unknown]
  - Diarrhoea [Unknown]
  - Muscle spasticity [Unknown]
  - Tongue ulceration [Unknown]
  - Hot flush [Unknown]
  - Cough [Not Recovered/Not Resolved]
  - Rash erythematous [Not Recovered/Not Resolved]

NARRATIVE: CASE EVENT DATE: 201311
